FAERS Safety Report 19144600 (Version 1)
Quarter: 2021Q2

REPORT INFORMATION
  Report Type: Spontaneous
  Country: DE (occurrence: DE)
  Receive Date: 20210416
  Receipt Date: 20210416
  Transmission Date: 20210717
  Serious: Yes (Other)
  Sender: FDA-Public Use
  Company Number: DE-HETERO-2017HINSPO0485

PATIENT
  Age: 32 Year
  Sex: Female

DRUGS (5)
  1. LEVETIRACETAM. [Suspect]
     Active Substance: LEVETIRACETAM
     Indication: EPILEPSY
     Dosage: 500 MG, BID
     Route: 048
     Dates: start: 20160508, end: 20170117
  2. CARBAMAZEPINE. [Suspect]
     Active Substance: CARBAMAZEPINE
     Indication: EPILEPSY
     Dosage: 500 MG, BID
     Route: 048
     Dates: start: 20160508, end: 20170117
  3. ZONEGRAN [Suspect]
     Active Substance: ZONISAMIDE
     Dosage: 200 MILLIGRAM, QD
     Route: 048
     Dates: start: 20160522, end: 20170117
  4. ZONEGRAN [Suspect]
     Active Substance: ZONISAMIDE
     Indication: EPILEPSY
     Dosage: 200 MG, QD
     Route: 048
     Dates: start: 20160508, end: 20170117
  5. CARBAMAZEPINE. [Suspect]
     Active Substance: CARBAMAZEPINE
     Dosage: 500 MILLIGRAM, BID
     Route: 048
     Dates: start: 20160522, end: 20170117

REACTIONS (4)
  - Pre-eclampsia [Unknown]
  - Exposure during pregnancy [Unknown]
  - Gestational diabetes [Unknown]
  - Premature delivery [Unknown]

NARRATIVE: CASE EVENT DATE: 20170117
